FAERS Safety Report 4521842-8 (Version None)
Quarter: 2004Q4

REPORT INFORMATION
  Report Type: 
  Country: None (occurrence: None)
  Receive Date: 20041209
  Receipt Date: 20041130
  Transmission Date: 20050328
  Serious: Yes (Hospitalization)
  Sender: FDA-Public Use
  Company Number: FR-BRISTOL-MYERS SQUIBB COMPANY-12781159

PATIENT
  Age: 85 Year
  Sex: Female

DRUGS (3)
  1. COUMADIN [Suspect]
     Indication: ATRIAL FIBRILLATION
     Route: 048
     Dates: end: 20040315
  2. DOLIPRANE [Interacting]
     Indication: PAIN IN EXTREMITY
     Dates: end: 20040316
  3. SECTRAL [Concomitant]
     Indication: ATRIAL FIBRILLATION

REACTIONS (7)
  - DRUG INTERACTION [None]
  - DUODENITIS [None]
  - FALL [None]
  - GASTROINTESTINAL HAEMORRHAGE [None]
  - HAEMATOMA [None]
  - HAEMOGLOBIN DECREASED [None]
  - PAIN [None]
